FAERS Safety Report 7156971-6 (Version None)
Quarter: 2010Q4

REPORT INFORMATION
  Report Type: 
  Country: None (occurrence: None)
  Receive Date: 20101214
  Receipt Date: 20100112
  Transmission Date: 20110411
  Serious: No
  Sender: FDA-Public Use
  Company Number: US-ASTRAZENECA-2010SE01422

PATIENT
  Sex: Female

DRUGS (2)
  1. CRESTOR [Suspect]
     Indication: BLOOD CHOLESTEROL DECREASED
     Route: 048
  2. DIURETIC [Concomitant]
     Indication: BLOOD PRESSURE

REACTIONS (2)
  - ALOPECIA [None]
  - PARAESTHESIA [None]
